FAERS Safety Report 6837640-6 (Version None)
Quarter: 2010Q3

REPORT INFORMATION
  Report Type: 
  Country: None (occurrence: None)
  Receive Date: 20100713
  Receipt Date: 20070520
  Transmission Date: 20110219
  Serious: No
  Sender: FDA-Public Use
  Company Number: US-PFIZER INC-2007041154

PATIENT
  Sex: Male
  Weight: 68.636 kg

DRUGS (12)
  1. CHANTIX [Suspect]
     Indication: SMOKING CESSATION THERAPY
     Dates: start: 20070513
  2. INSULIN LISPRO [Concomitant]
     Indication: DIABETES MELLITUS
  3. METHADONE HCL [Concomitant]
     Indication: BONE DISORDER
  4. PERCOCET [Concomitant]
     Indication: BONE DISORDER
     Dosage: 1.0-1.5MG,TWICE OR THREE TIMES A DAY
  5. RANITIDINE [Concomitant]
  6. PERI-COLACE [Concomitant]
  7. ATACAND [Concomitant]
  8. MAVIK [Concomitant]
  9. MONTELUKAST SODIUM [Concomitant]
  10. DOXAZOSIN [Concomitant]
  11. GEMFIBROZIL [Concomitant]
     Indication: BLOOD CHOLESTEROL INCREASED
  12. LANTUS [Concomitant]
     Indication: DIABETES MELLITUS

REACTIONS (3)
  - DYSGEUSIA [None]
  - NAUSEA [None]
  - RETCHING [None]
